FAERS Safety Report 5293682-6 (Version None)
Quarter: 2007Q1

REPORT INFORMATION
  Report Type: 
  Country: None (occurrence: None)
  Receive Date: 20070116
  Receipt Date: 20060530
  Transmission Date: 20070707
  Serious: Yes (Hospitalization, Other)
  Sender: FDA-Public Use
  Company Number: HQWYE484710NOV05

PATIENT
  Age: 61 Year
  Sex: Female
  Weight: 55.39 kg

DRUGS (6)
  1. PREMPRO [Suspect]
  2. CLIMARA [Suspect]
  3. CYCRIN [Suspect]
  4. PREMARIN [Suspect]
  5. PREMARIN [Suspect]
  6. PROVERA [Suspect]

REACTIONS (1)
  - BREAST CANCER [None]
